FAERS Safety Report 21158079 (Version 1)
Quarter: 2022Q3

REPORT INFORMATION
  Report Type: Spontaneous
  Country: US (occurrence: None)
  Receive Date: 20220801
  Receipt Date: 20220801
  Transmission Date: 20221027
  Serious: No
  Sender: FDA-Public Use
  Company Number: None

PATIENT
  Age: 64 Year
  Sex: Female
  Weight: 69.75 kg

DRUGS (1)
  1. PAXLOVID [Suspect]
     Active Substance: NIRMATRELVIR\RITONAVIR
     Indication: COVID-19
     Dosage: OTHER QUANTITY : 3 CAPSULE(S);?FREQUENCY : TWICE A DAY;?
     Route: 048
     Dates: start: 20220721, end: 20220726

REACTIONS (14)
  - Dysgeusia [None]
  - Nausea [None]
  - Hypophagia [None]
  - SARS-CoV-2 test positive [None]
  - Headache [None]
  - Sinus congestion [None]
  - Dysphonia [None]
  - Cough [None]
  - Fatigue [None]
  - COVID-19 [None]
  - Chills [None]
  - Body temperature increased [None]
  - Paranasal sinus discomfort [None]
  - Bedridden [None]

NARRATIVE: CASE EVENT DATE: 20220721
